FAERS Safety Report 12267350 (Version 1)
Quarter: 2016Q2

REPORT INFORMATION
  Report Type: Other
  Country: AR (occurrence: AR)
  Receive Date: 20160414
  Receipt Date: 20160414
  Transmission Date: 20160815
  Serious: Yes (Other)
  Sender: FDA-Public Use
  Company Number: AR-SHIRE-AR201604396

PATIENT
  Age: 7 Year
  Sex: Male

DRUGS (3)
  1. ELAPRASE [Suspect]
     Active Substance: IDURSULFASE
     Indication: PRODUCT USED FOR UNKNOWN INDICATION
     Dosage: 18 MG (3 VIALS), UNKNOWN
     Route: 041
     Dates: start: 201211, end: 20121214
  2. ELAPRASE [Suspect]
     Active Substance: IDURSULFASE
     Dosage: 12 MG (2 VIALS), UNKNOWN
     Route: 041
     Dates: start: 20120821, end: 201211
  3. ELAPRASE [Suspect]
     Active Substance: IDURSULFASE
     Dosage: 0.5 MG/KG (2-3 VIALS), 1X/WEEK
     Route: 041
     Dates: start: 201305

REACTIONS (3)
  - Adverse reaction [Unknown]
  - Anaphylactic reaction [Unknown]
  - Infusion related reaction [Unknown]

NARRATIVE: CASE EVENT DATE: 201211
